FAERS Safety Report 8572421-7 (Version None)
Quarter: 2012Q3

REPORT INFORMATION
  Report Type: 
  Country: None (occurrence: None)
  Receive Date: 20120806
  Receipt Date: 20120726
  Transmission Date: 20120928
  Serious: Yes (Other)
  Sender: FDA-Public Use
  Company Number: CN-ASTRAZENECA-2012SE54229

PATIENT
  Sex: Male
  Weight: 55 kg

DRUGS (1)
  1. DIPRIVAN [Suspect]
     Indication: ENDOSCOPY UPPER GASTROINTESTINAL TRACT
     Route: 040
     Dates: start: 20090312, end: 20090312

REACTIONS (2)
  - TONGUE OEDEMA [None]
  - DRUG ERUPTION [None]
